FAERS Safety Report 5285470-1 (Version None)
Quarter: 2007Q1

REPORT INFORMATION
  Report Type: 
  Country: None (occurrence: None)
  Receive Date: 20070328
  Receipt Date: 20070322
  Transmission Date: 20070707
  Serious: Yes (Other)
  Sender: FDA-Public Use
  Company Number: 236570

PATIENT
  Sex: Male
  Weight: 54.4 kg

DRUGS (5)
  1. XOLAIR [Suspect]
     Indication: ASTHMA
     Dosage: 1/MONTH, SUBCUTANEOUS
     Route: 058
     Dates: start: 20060201
  2. ADVAIR DISKUS 100/50 [Concomitant]
  3. XOPENEX [Concomitant]
  4. SINGULAIR [Concomitant]
  5. INHALER (TYPE UNKNOWN) (GENERIC COMPONENT(S) NOT KNOWN) [Concomitant]

REACTIONS (5)
  - COUGH [None]
  - DYSPNOEA [None]
  - FATIGUE [None]
  - MALAISE [None]
  - WHEEZING [None]
